FAERS Safety Report 9011052 (Version 1)
Quarter: 2013Q1

REPORT INFORMATION
  Report Type: Spontaneous
  Country: MX (occurrence: MX)
  Receive Date: 20130109
  Receipt Date: 20130109
  Transmission Date: 20140127
  Serious: Yes (Death)
  Sender: FDA-Public Use
  Company Number: MX-GLAXOSMITHKLINE-A1007190A

PATIENT
  Sex: Female

DRUGS (1)
  1. SERETIDE [Suspect]
     Indication: PULMONARY FIBROSIS
     Route: 065
     Dates: start: 2009, end: 201204

REACTIONS (2)
  - Pulmonary fibrosis [Fatal]
  - Off label use [Unknown]
